FAERS Safety Report 12851737 (Version 1)
Quarter: 2016Q4

REPORT INFORMATION
  Report Type: Spontaneous
  Country: US (occurrence: US)
  Receive Date: 20161014
  Receipt Date: 20161014
  Transmission Date: 20170207
  Serious: Yes (Life-Threatening)
  Sender: FDA-Public Use
  Company Number: None

PATIENT
  Age: 62 Year
  Sex: Male
  Weight: 68.4 kg

DRUGS (3)
  1. OMEPROZOLE [Concomitant]
     Active Substance: OMEPRAZOLE
  2. OVER 50 MENS MULTIVITAMIN [Concomitant]
  3. ZYRTEC [Suspect]
     Active Substance: CETIRIZINE HYDROCHLORIDE
     Indication: URTICARIA
     Dosage: ?          QUANTITY:1 TABLET(S);?
     Route: 048
     Dates: start: 20160120, end: 20161012

REACTIONS (5)
  - Dysphagia [None]
  - Dyspnoea [None]
  - Withdrawal syndrome [None]
  - Peripheral swelling [None]
  - Urticaria [None]

NARRATIVE: CASE EVENT DATE: 20161012
